FAERS Safety Report 21454883 (Version 3)
Quarter: 2022Q4

REPORT INFORMATION
  Report Type: Report from Study
  Country: GB (occurrence: GB)
  Receive Date: 20221014
  Receipt Date: 20221103
  Transmission Date: 20230112
  Serious: Yes (Death, Hospitalization, Other)
  Sender: FDA-Public Use
  Company Number: GB-CELGENE-GBR-2015080848

PATIENT
  Age: 74 Year
  Sex: Female
  Weight: 81.5 kg

DRUGS (38)
  1. DEXAMETHASONE [Suspect]
     Active Substance: DEXAMETHASONE
     Indication: Plasma cell myeloma
     Dosage: UNK
     Route: 048
     Dates: start: 20080811, end: 20080811
  2. DEXAMETHASONE [Suspect]
     Active Substance: DEXAMETHASONE
     Dosage: UNK
     Route: 048
     Dates: start: 20110308, end: 20110520
  3. DEXAMETHASONE [Suspect]
     Active Substance: DEXAMETHASONE
     Dosage: 40 MG, 1 DOSE WEEKLY
     Route: 048
     Dates: start: 20150630
  4. DEXAMETHASONE [Suspect]
     Active Substance: DEXAMETHASONE
     Dosage: 40 MG, 1 DOSE WEEKLY
     Route: 048
     Dates: start: 20150701, end: 20150722
  5. DEXAMETHASONE [Suspect]
     Active Substance: DEXAMETHASONE
     Dosage: 40 MG, 1 DOSE WEEKLY
     Route: 048
     Dates: start: 20150708
  6. DEXAMETHASONE [Suspect]
     Active Substance: DEXAMETHASONE
     Dosage: 40 MG, 1 DOSE WEEKLY
     Route: 048
     Dates: start: 20150715
  7. DEXAMETHASONE [Suspect]
     Active Substance: DEXAMETHASONE
     Dosage: 40 MILLIGRAM DAILY; 40 MG
     Route: 048
     Dates: start: 20150722
  8. POMALIDOMIDE [Suspect]
     Active Substance: POMALIDOMIDE
     Indication: Plasma cell myeloma
     Dosage: FREQUENCY: 1 CYCLE?4 MG, 24 DOSE 28 DAYS
     Route: 048
     Dates: start: 20150630
  9. POMALIDOMIDE [Suspect]
     Active Substance: POMALIDOMIDE
     Dosage: 4MG
     Route: 048
     Dates: start: 20150701, end: 20150721
  10. POMALIDOMIDE [Suspect]
     Active Substance: POMALIDOMIDE
     Dosage: 84 MG, 1 DOSE 28 DAYS (4 MG)
     Route: 065
     Dates: start: 20150721, end: 20150721
  11. POMALIDOMIDE [Suspect]
     Active Substance: POMALIDOMIDE
     Dosage: 84 MG, 1 DOSE 28 DAYS
     Route: 048
     Dates: start: 20150630
  12. POMALIDOMIDE [Suspect]
     Active Substance: POMALIDOMIDE
     Dosage: 4 MG, 24 DOSE 28 DAYS
     Route: 048
  13. DURAMORPH [Concomitant]
     Active Substance: MORPHINE SULFATE
     Indication: Pain
  14. AMLODIPINE MALEATE [Concomitant]
     Active Substance: AMLODIPINE MALEATE
     Indication: Hypertension
     Dosage: 5 MILLIGRAM DAILY; THERAPY END FLAG: DRUG NO LONGER ADMINISTERED
     Route: 048
     Dates: start: 2010, end: 20150622
  15. AMLODIPINE MALEATE [Concomitant]
     Active Substance: AMLODIPINE MALEATE
  16. AMLODIPINE MALEATE [Concomitant]
     Active Substance: AMLODIPINE MALEATE
  17. CLODRONIC ACID [Concomitant]
     Active Substance: CLODRONIC ACID
     Indication: Plasma cell myeloma
     Dosage: 1040 MILLIGRAM DAILY; 1040 MG, THERAPY END FLAG: DRUG NO LONGER ADMINISTERED
     Route: 065
     Dates: start: 200808, end: 20150728
  18. CLODRONIC ACID [Concomitant]
     Active Substance: CLODRONIC ACID
  19. CLODRONIC ACID [Concomitant]
     Active Substance: CLODRONIC ACID
  20. CLODRONIC ACID [Concomitant]
     Active Substance: CLODRONIC ACID
  21. CLODRONIC ACID [Concomitant]
     Active Substance: CLODRONIC ACID
  22. ASPIRIN [Concomitant]
     Active Substance: ASPIRIN
     Indication: Thrombosis prophylaxis
     Dosage: 75 MG
     Route: 048
     Dates: start: 20150120, end: 201506
  23. ACETAMINOPHEN [Concomitant]
     Active Substance: ACETAMINOPHEN
     Indication: Pain
     Dosage: 1 G
     Route: 048
     Dates: start: 201504, end: 20150706
  24. ACETAMINOPHEN [Concomitant]
     Active Substance: ACETAMINOPHEN
     Dosage: 3 GRAM
     Route: 048
     Dates: start: 201504, end: 20150706
  25. ACETAMINOPHEN [Concomitant]
     Active Substance: ACETAMINOPHEN
  26. CODEINE [Concomitant]
     Active Substance: CODEINE
     Indication: Pain
     Dosage: 30 MG
     Route: 048
     Dates: start: 201504, end: 20150706
  27. CODEINE [Concomitant]
     Active Substance: CODEINE
     Dosage: 30 MILLIGRAM
     Route: 048
     Dates: start: 201504, end: 20150706
  28. CODEINE [Concomitant]
     Active Substance: CODEINE
  29. MORPHINE SULFATE [Concomitant]
     Active Substance: MORPHINE SULFATE
     Indication: Pain
     Dosage: FREQUENCY TEXT: AS NEEDED??2.5 ML
     Route: 065
     Dates: start: 20150606, end: 20150828
  30. OMEPRAZOLE [Concomitant]
     Active Substance: OMEPRAZOLE
     Indication: Product used for unknown indication
     Dosage: 20 MG
     Route: 065
     Dates: start: 20150630
  31. OMEPRAZOLE [Concomitant]
     Active Substance: OMEPRAZOLE
  32. OMEPRAZOLE [Concomitant]
     Active Substance: OMEPRAZOLE
  33. ENOXAPARIN [Concomitant]
     Active Substance: ENOXAPARIN
     Indication: Thrombosis prophylaxis
     Dosage: FREQUENCY TEXT: NOT PROVIDED?40 MG
     Route: 048
     Dates: start: 20150630
  34. ENOXAPARIN [Concomitant]
     Active Substance: ENOXAPARIN
  35. ENOXAPARIN [Concomitant]
     Active Substance: ENOXAPARIN
  36. ENOXAPARIN [Concomitant]
     Active Substance: ENOXAPARIN
  37. ENOXAPARIN [Concomitant]
     Active Substance: ENOXAPARIN
  38. ERYTHROPOIETIN [Concomitant]
     Active Substance: ERYTHROPOIETIN
     Indication: Product used for unknown indication
     Route: 065

REACTIONS (20)
  - Plasma cell myeloma [Fatal]
  - Malaise [Not Recovered/Not Resolved]
  - Hypercalcaemia [Not Recovered/Not Resolved]
  - Dyspnoea [Recovered/Resolved]
  - Oedema peripheral [Not Recovered/Not Resolved]
  - Arthralgia [Recovered/Resolved]
  - Anaemia [Fatal]
  - Hepatic enzyme increased [Recovered/Resolved]
  - Arthritis reactive [Recovered/Resolved]
  - Infection [Recovered/Resolved]
  - Condition aggravated [Unknown]
  - Lower respiratory tract infection [Recovered/Resolved]
  - Peripheral sensory neuropathy [Not Recovered/Not Resolved]
  - Fatigue [Recovered/Resolved]
  - Diarrhoea [Recovered/Resolved]
  - Thrombocytopenia [Recovered/Resolved]
  - Leukopenia [Recovered/Resolved]
  - Neutropenia [Recovered/Resolved]
  - Nausea [Recovered/Resolved]
  - Blood alkaline phosphatase increased [Recovered/Resolved]

NARRATIVE: CASE EVENT DATE: 20150706
